FAERS Safety Report 4652904-2 (Version None)
Quarter: 2005Q2

REPORT INFORMATION
  Report Type: 
  Country: None (occurrence: None)
  Receive Date: 20050503
  Receipt Date: 20050414
  Transmission Date: 20051028
  Serious: Yes (Disabling)
  Sender: FDA-Public Use
  Company Number: B0104868A

PATIENT
  Sex: Female

DRUGS (4)
  1. LAMICTAL [Suspect]
     Indication: CONVULSION
     Dosage: 200 MG/PER DAY/ORAL
     Route: 048
  2. VALPROATE SODIUM [Suspect]
     Indication: CONVULSION
     Dosage: 2000 MG/PER DAY/ORAL
     Route: 048
  3. CLONAZEPAM [Suspect]
     Indication: CONVULSION
     Dosage: 7 UNIT DAY/PER DAY/ORAL
     Route: 048
  4. CALCIUM FOLINATE TABLET (CALCIUM FOLINATE) [Suspect]
     Indication: ANAEMIA
     Dosage: 50 MG/PER DAY/ORAL
     Route: 048
     Dates: start: 20000609

REACTIONS (9)
  - BODY HEIGHT BELOW NORMAL [None]
  - CONGENITAL ANOMALY [None]
  - CONGENITAL NOSE MALFORMATION [None]
  - DRUG EXPOSURE DURING PREGNANCY [None]
  - FACIAL DYSMORPHISM [None]
  - HYPERTELORISM OF ORBIT [None]
  - LIP DISORDER [None]
  - MICROTIA [None]
  - SMALL FOR DATES BABY [None]
